FAERS Safety Report 4894145-X (Version None)
Quarter: 2006Q1

REPORT INFORMATION
  Report Type: 
  Country: None (occurrence: None)
  Receive Date: 20060127
  Receipt Date: 20050823
  Transmission Date: 20060701
  Serious: No
  Sender: FDA-Public Use
  Company Number: US-GLAXOSMITHKLINE-A0571464A

PATIENT
  Age: 59 Year
  Sex: Female

DRUGS (4)
  1. WELLBUTRIN [Suspect]
     Indication: DEPRESSION
     Route: 048
     Dates: start: 20050301, end: 20050821
  2. PREMARIN [Concomitant]
  3. SYNTHROID [Concomitant]
  4. ATIVAN [Concomitant]

REACTIONS (1)
  - TINNITUS [None]
